FAERS Safety Report 6131539-9 (Version None)
Quarter: 2009Q1

REPORT INFORMATION
  Report Type: 
  Country: None (occurrence: None)
  Receive Date: 20090325
  Receipt Date: 20081029
  Transmission Date: 20090719
  Serious: Yes (Hospitalization)
  Sender: FDA-Public Use
  Company Number: US-BRISTOL-MYERS SQUIBB COMPANY-14348072

PATIENT
  Age: 63 Year
  Sex: Male

DRUGS (4)
  1. ERBITUX [Suspect]
     Indication: HEAD AND NECK CANCER
     Dosage: 700MG LOADING DOSE
     Route: 042
     Dates: start: 20080922, end: 20080922
  2. BENADRYL [Concomitant]
     Indication: PREMEDICATION
     Dates: start: 20080922
  3. DECADRON [Concomitant]
     Indication: PREMEDICATION
  4. KYTRIL [Concomitant]

REACTIONS (1)
  - INFUSION RELATED REACTION [None]
